FAERS Safety Report 18012848 (Version 1)
Quarter: 2020Q3

REPORT INFORMATION
  Report Type: Report from Study
  Country: IT (occurrence: IT)
  Receive Date: 20200713
  Receipt Date: 20200713
  Transmission Date: 20201105
  Serious: Yes (Hospitalization)
  Sender: FDA-Public Use
  Company Number: PHHO2019IT002053

PATIENT
  Age: 78 Year
  Sex: Female
  Weight: 55 kg

DRUGS (3)
  1. CAPMATINIB [Suspect]
     Active Substance: CAPMATINIB
     Indication: HEPATOCELLULAR CARCINOMA
     Dosage: 400 MG, BID
     Route: 048
     Dates: start: 20181213, end: 20190111
  2. PDR001 [Suspect]
     Active Substance: SPARTALIZUMAB
     Dosage: 300 MG, Q3W
     Route: 042
     Dates: start: 20190213
  3. PDR001 [Suspect]
     Active Substance: SPARTALIZUMAB
     Indication: HEPATOCELLULAR CARCINOMA
     Dosage: 300 MG, Q3W
     Route: 042
     Dates: start: 20181213, end: 20190102

REACTIONS (2)
  - Ascites [Recovered/Resolved]
  - Hypertransaminasaemia [Recovering/Resolving]

NARRATIVE: CASE EVENT DATE: 20190112
